FAERS Safety Report 9559638 (Version 1)
Quarter: 2013Q3

REPORT INFORMATION
  Report Type: Spontaneous
  Country: US (occurrence: None)
  Receive Date: 20130906
  Receipt Date: 20130906
  Transmission Date: 20140515
  Serious: Yes (Other)
  Sender: FDA-Public Use
  Company Number: 163-POMAL-13072016

PATIENT
  Age: 68 Year
  Sex: Female

DRUGS (16)
  1. POMALYST [Suspect]
     Indication: PLASMA CELL MYELOMA
     Dosage: 1MG, 21 IN 21 D, PO
     Route: 048
     Dates: start: 20130516
  2. ALLOPURINOL (ALLOPURINOL) [Concomitant]
  3. BACTRIM DS (BACTRIM) [Concomitant]
  4. ACIPHEX EC (RABEPRAZOLE SODIUM) [Concomitant]
  5. PERCOCET (OXYCOCET) (CAPSULES) [Concomitant]
  6. SENOKOT S (COLOXYL WITH SENNA) [Concomitant]
  7. ASPIR EC (ACETYLSALICYLIC ACID) [Concomitant]
  8. LOMOTIL (LOMOTIL) [Concomitant]
  9. DIFLUCAN (FLUCONAZOLE) [Concomitant]
  10. ZOMETA (ZOLEDRONIC ACID) [Concomitant]
  11. LORAZEPAM (LORAZEPAM) [Concomitant]
  12. PROCHLORPERAZINE (PROCHLORPERAZINE) [Concomitant]
  13. ZANTAC (RANITIDINIE HYDROCHLORIDE) [Concomitant]
  14. ZOFRAN (ONDANSETRON HYDROCHLORIDE) [Concomitant]
  15. VALTREX (VALACICLOVIR HYDROCHLORIDE) [Concomitant]
  16. METOPROLOL TARTRATE (METOPROLOL TARTRATE) [Concomitant]

REACTIONS (1)
  - Tooth infection [None]
